FAERS Safety Report 4685112-X (Version None)
Quarter: 2005Q2

REPORT INFORMATION
  Report Type: 
  Country: None (occurrence: None)
  Receive Date: 20050531
  Receipt Date: 20050214
  Transmission Date: 20051028
  Serious: No
  Sender: FDA-Public Use
  Company Number: FABR-11020

PATIENT
  Age: 71 Year
  Sex: Male
  Weight: 64.7 kg

DRUGS (9)
  1. FABRAZYME [Suspect]
     Indication: FABRY'S DISEASE
     Dosage: 70 MG Q2WKS IV
     Route: 042
     Dates: start: 20031015
  2. PRAVACHOL [Concomitant]
  3. FLOVENT [Concomitant]
  4. LASIX [Concomitant]
  5. AMLODIPINE [Concomitant]
  6. ASPIRIN [Concomitant]
  7. PLAVIX [Concomitant]
  8. PHOSLO [Concomitant]
  9. ROCALTROL [Concomitant]

REACTIONS (2)
  - HAEMODIALYSIS-INDUCED SYMPTOM [None]
  - RENAL FAILURE CHRONIC [None]
